FAERS Safety Report 4899200-6 (Version None)
Quarter: 2006Q1

REPORT INFORMATION
  Report Type: 
  Country: None (occurrence: None)
  Receive Date: 20060131
  Receipt Date: 20060124
  Transmission Date: 20060701
  Serious: Yes (Other)
  Sender: FDA-Public Use
  Company Number: 200511149BVD

PATIENT
  Sex: Female
  Weight: 57 kg

DRUGS (1)
  1. MOXIFLOXACIN HCL [Suspect]
     Indication: BRONCHITIS
     Dosage: ORAL
     Route: 048

REACTIONS (6)
  - ANGINA PECTORIS [None]
  - CHILLS [None]
  - COLD SWEAT [None]
  - PALLOR [None]
  - URINARY RETENTION [None]
  - VERTIGO [None]
